FAERS Safety Report 10045478 (Version 3)
Quarter: 2015Q2

REPORT INFORMATION
  Report Type: Report from Study
  Country: US (occurrence: US)
  Receive Date: 20140328
  Receipt Date: 20150609
  Transmission Date: 20150821
  Serious: Yes (Other)
  Sender: FDA-Public Use
  Company Number: US-ASTRAZENECA-2014SE20694

PATIENT
  Age: 57 Year
  Sex: Female
  Weight: 68 kg

DRUGS (7)
  1. SYMBICORT [Suspect]
     Active Substance: BUDESONIDE\FORMOTEROL FUMARATE DIHYDRATE
     Indication: ASTHMA
     Dosage: 160/ 4.5, UNKNOWN
     Route: 055
     Dates: start: 2012
  2. SYMBICORT [Suspect]
     Active Substance: BUDESONIDE\FORMOTEROL FUMARATE DIHYDRATE
     Indication: ASTHMA
     Dosage: 320MCG BID
     Route: 055
     Dates: start: 201402, end: 201403
  3. ATIVAN [Concomitant]
     Active Substance: LORAZEPAM
     Indication: ANXIETY
     Route: 048
     Dates: start: 201402
  4. HYDROCODONE [Concomitant]
     Active Substance: HYDROCODONE
     Indication: NEURALGIA
     Route: 048
     Dates: start: 2011
  5. PROAIR HFA [Concomitant]
     Active Substance: ALBUTEROL SULFATE
     Indication: RESPIRATORY THERAPY
     Dosage: 90MCG X2 PUFFS PRN
     Route: 055
     Dates: start: 2010
  6. SYMBICORT [Suspect]
     Active Substance: BUDESONIDE\FORMOTEROL FUMARATE DIHYDRATE
     Indication: ASTHMA
     Dosage: ONCE A DAY AS NEEDED
     Route: 055
  7. PULMICORT FLEXHALER [Suspect]
     Active Substance: BUDESONIDE
     Route: 055

REACTIONS (11)
  - Dizziness [Recovering/Resolving]
  - Panic attack [Unknown]
  - Eye disorder [Unknown]
  - Glaucoma [Unknown]
  - Anxiety [Recovering/Resolving]
  - Vision blurred [Unknown]
  - Intentional product misuse [Unknown]
  - Confusional state [Recovering/Resolving]
  - Restlessness [Unknown]
  - Drug ineffective [Unknown]
  - Nervousness [Unknown]
